FAERS Safety Report 20752221 (Version 2)
Quarter: 2022Q2

REPORT INFORMATION
  Report Type: Other
  Country: JP (occurrence: JP)
  Receive Date: 20220426
  Receipt Date: 20220429
  Transmission Date: 20220720
  Serious: Yes (Other)
  Sender: FDA-Public Use
  Company Number: JP-CHUGAI-2022015174

PATIENT
  Age: 17 Year
  Sex: Female

DRUGS (1)
  1. CELLCEPT [Suspect]
     Active Substance: MYCOPHENOLATE MOFETIL
     Indication: Immunoglobulin G4 related disease
     Dosage: 800 MILLIGRAM/SQ. METER
     Route: 048

REACTIONS (2)
  - Eosinophilic granulomatosis with polyangiitis [Unknown]
  - Off label use [Unknown]
